FAERS Safety Report 18551331 (Version 2)
Quarter: 2020Q4

REPORT INFORMATION
  Report Type: Spontaneous
  Country: US (occurrence: US)
  Receive Date: 20201126
  Receipt Date: 20201207
  Transmission Date: 20210114
  Serious: No
  Sender: FDA-Public Use
  Company Number: US-PFIZER INC-2020468268

PATIENT
  Sex: Female

DRUGS (9)
  1. PALONOSETRON HCL [Concomitant]
     Active Substance: PALONOSETRON HYDROCHLORIDE
     Dosage: 0.25 MG (OF 0.25 MG/5RNL), DAILY (PUSH OVER 30 SEC FOR 1 DAY)
     Route: 042
     Dates: start: 20170501
  2. NEULASTA [Concomitant]
     Active Substance: PEGFILGRASTIM
     Dosage: 6 MG (OR 6 MG/0.6ML), DAILY FOR 1 DAY
     Route: 058
     Dates: start: 20170502
  3. DEXAMETHASONE. [Concomitant]
     Active Substance: DEXAMETHASONE
     Dosage: 4 MG (2 TABLET), DAILY
     Route: 048
     Dates: start: 20170501
  4. DOCETAXEL. [Suspect]
     Active Substance: DOCETAXEL
     Indication: BREAST CANCER STAGE II
     Dosage: 159 MG (AT 75 MG/M2 OF 10 MG/ML), DAILY (OVER 1 HR FOR 1 DAY IN NS 250 ML (5) AT RATE 250 ML/HR)
     Route: 042
     Dates: start: 20170501
  5. CARBOPLATIN. [Concomitant]
     Active Substance: CARBOPLATIN
     Dosage: 684 MG (AT 4.494 AUC) (10 MG/ML), DAILY (OVER 30 MIN FOR 1 DAY IN NS 250 ML (4) AT THE RATE OR 500)
     Route: 042
     Dates: start: 20170501
  6. PERJETA [Concomitant]
     Active Substance: PERTUZUMAB
     Dosage: HELD FOR 2 OUT OR 6 CYCLES
     Dates: start: 20170320, end: 20170703
  7. HERCEPTIN [Concomitant]
     Active Substance: TRASTUZUMAB
     Dosage: 623 MG (6 MG/KG) (21 MG/ML), DAILY
     Route: 042
     Dates: start: 20170501
  8. DIPHENHYDRAMINE HYDROCHLORIDE. [Concomitant]
     Active Substance: DIPHENHYDRAMINE HYDROCHLORIDE
     Dosage: 25 MG (OR 50 MG/ML), DAILY (PUSH 1 OVER 2 MIN FOR 1 DAY)
     Route: 042
     Dates: start: 20170501
  9. PERTUZUMAB. [Concomitant]
     Active Substance: PERTUZUMAB
     Dosage: 420 MG (OF 420), DAILY (OVER 30 MIN FOR 1 DAY IN NS 250 ML (2) AT THE RATE OF 500 ML/HR)
     Route: 042
     Dates: start: 20170501

REACTIONS (4)
  - Presbyopia [Unknown]
  - Ocular hyperaemia [Not Recovered/Not Resolved]
  - Hordeolum [Unknown]
  - Lacrimation increased [Unknown]
